FAERS Safety Report 24630293 (Version 25)
Quarter: 2025Q4

REPORT INFORMATION
  Report Type: Spontaneous
  Country: CA (occurrence: CA)
  Receive Date: 20241118
  Receipt Date: 20251216
  Transmission Date: 20260117
  Serious: Yes (Death, Life-Threatening, Hospitalization, Disabling, Congenital Anomaly, Other)
  Sender: BAUSCH AND LOMB
  Company Number: CA-BAUSCH-BL-2024-016752

PATIENT
  Age: 59 Year
  Sex: Female
  Weight: 68 kg

DRUGS (71)
  1. ATIVAN [Suspect]
     Active Substance: LORAZEPAM
     Indication: Rheumatoid arthritis
     Dosage: 2 ADMINISTRATIONS, ROUTE UNKNOWN (2)
     Route: 065
  2. ARESTIN [Suspect]
     Active Substance: MINOCYCLINE HYDROCHLORIDE
     Indication: Rheumatoid arthritis
     Route: 065
  3. ARESTIN [Suspect]
     Active Substance: MINOCYCLINE HYDROCHLORIDE
  4. HYDROCORTISONE BUTYRATE [Suspect]
     Active Substance: HYDROCORTISONE BUTYRATE
     Indication: Rheumatoid arthritis
     Dosage: 3 ADMINISTRATIONS
     Route: 065
  5. HYDROCORTISONE BUTYRATE [Suspect]
     Active Substance: HYDROCORTISONE BUTYRATE
     Dosage: 3 ADMINISTRATIONS
     Route: 061
  6. MINOCYCLINE HYDROCHLORIDE [Suspect]
     Active Substance: MINOCYCLINE HYDROCHLORIDE
     Indication: Rheumatoid arthritis
     Dosage: MINOCYCLINE HYDROCHLORIDE: 1. UNK; 2. 400 MG, UNK; 3.UNK
     Route: 065
  7. MINOCYCLINE HYDROCHLORIDE [Suspect]
     Active Substance: MINOCYCLINE HYDROCHLORIDE
  8. DILTIAZEM HYDROCHLORIDE [Suspect]
     Active Substance: DILTIAZEM HYDROCHLORIDE
     Indication: Rheumatoid arthritis
     Dosage: DILTIAZEM 1, DILTIAZEM HYDROCHLORIDE UNK: 2, BUCCAL: 3
     Route: 065
  9. HYDROCORTISONE [Suspect]
     Active Substance: HYDROCORTISONE
     Indication: Rheumatoid arthritis
     Route: 050
  10. HYDROCORTISONE [Suspect]
     Active Substance: HYDROCORTISONE
     Dosage: HYDROCORTISONE SODIUM SUCCINATE; 1. 25MG, 2. ORAL
     Route: 065
  11. HYDROCORTISONE [Suspect]
     Active Substance: HYDROCORTISONE
     Route: 058
  12. HYDROCORTISONE [Suspect]
     Active Substance: HYDROCORTISONE
     Dosage: 2 ADMINISTRATIONS
     Route: 058
  13. HYDROCORTISONE [Suspect]
     Active Substance: HYDROCORTISONE
     Route: 065
  14. TRETINOIN [Suspect]
     Active Substance: TRETINOIN
     Indication: Product used for unknown indication
     Dosage: UNK 361 DAYS: 1 IN 2 DAYS: 2 DOSAGE FORMS:2
     Route: 065
  15. ERYTHROMYCIN [Suspect]
     Active Substance: ERYTHROMYCIN
     Indication: Product used for unknown indication
     Route: 065
  16. LORAZEPAM [Suspect]
     Active Substance: LORAZEPAM
     Indication: Rheumatoid arthritis
     Dosage: UNK:2 UNK 1 MG: 3
     Route: 065
  17. MESALAMINE [Suspect]
     Active Substance: MESALAMINE
     Indication: Crohn^s disease
     Dosage: MEZAVANT ALSO KNOWN AS MESALAMINE UNK MESALAMIN: 2
     Route: 065
  18. HYDROCORTISONE [Suspect]
     Active Substance: HYDROCORTISONE
     Indication: Rheumatoid arthritis
     Dosage: UNK 50 MG: 2, UNK 40 MG:3, UNK 25 MG: 4
     Route: 048
  19. DICLOFENAC [Suspect]
     Active Substance: DICLOFENAC
     Indication: Rheumatoid arthritis
     Dosage: DICLOFENAC SODIUM. 1.50 MG, QD; 2. TBL; 3. TBL, ORAL; 4. TAB, 50MG 5. UNKNOWN
     Route: 050
  20. DICLOFENAC [Suspect]
     Active Substance: DICLOFENAC
     Dosage: DICLOFENAC SODIUM. 5. TAB, SUBCUTANEOUS, 6. TAB 100MG, 7. TAB ORAL
     Route: 050
  21. DICLOFENAC [Suspect]
     Active Substance: DICLOFENAC
     Dosage: DICLOFENAC, NOT SPECIFIED
     Route: 065
  22. DICLOFENAC DIETHYLAMINE [Suspect]
     Active Substance: DICLOFENAC DIETHYLAMINE
     Indication: Product used for unknown indication
     Route: 065
  23. DICLOFENAC POTASSIUM [Suspect]
     Active Substance: DICLOFENAC POTASSIUM
     Indication: Rheumatoid arthritis
     Dosage: UNK DATES; 1. TBL; 2. FILM-COATED TBL, ORAL. 3. 225 MG TABLET ORAL
     Route: 050
  24. DICLOFENAC POTASSIUM [Suspect]
     Active Substance: DICLOFENAC POTASSIUM
     Indication: Psoriasis
     Dosage: 4. FILM-COATED TBL, SUBCUTANEOUS, 5. FILM-COATED TBL, 50MG QD, 6. FILM-COATED TBL, 100MG, 7. TAB PO
     Route: 050
  25. DICLOFENAC POTASSIUM [Suspect]
     Active Substance: DICLOFENAC POTASSIUM
     Dosage: 2 ADMINISTRATIONS
     Route: 065
  26. DICLOFENAC POTASSIUM [Suspect]
     Active Substance: DICLOFENAC POTASSIUM
     Dosage: NOT SPECIFIED UNK:
     Route: 065
  27. DICLOFENAC POTASSIUM [Suspect]
     Active Substance: DICLOFENAC POTASSIUM
     Route: 048
  28. DICLOFENAC POTASSIUM [Suspect]
     Active Substance: DICLOFENAC POTASSIUM
     Route: 058
  29. DICLOFENAC POTASSIUM [Suspect]
     Active Substance: DICLOFENAC POTASSIUM
     Route: 065
  30. DICLOFENAC POTASSIUM [Suspect]
     Active Substance: DICLOFENAC POTASSIUM
     Route: 065
  31. DICLOFENAC SODIUM [Suspect]
     Active Substance: DICLOFENAC SODIUM
     Indication: Rheumatoid arthritis
     Dosage: 1. GEL, 2. 50MG
     Route: 050
  32. DICLOFENAC SODIUM [Suspect]
     Active Substance: DICLOFENAC SODIUM
     Indication: Osteoarthritis
     Dosage: DICLOFENAC SODIUM
     Route: 065
  33. DICLOFENAC SODIUM [Suspect]
     Active Substance: DICLOFENAC SODIUM
     Indication: Inflammation
     Route: 065
  34. DEXAMETHASONE [Suspect]
     Active Substance: DEXAMETHASONE
     Indication: Rheumatoid arthritis
     Dosage: UNK 25 MG:2 UNK: 3
     Route: 048
  35. ALBUTEROL SULFATE [Suspect]
     Active Substance: ALBUTEROL SULFATE
     Indication: Product used for unknown indication
     Dosage: UNK SALBUTAMOL (2 ADMINISTRATIONS): 2
     Route: 065
  36. HYDROCORTISONE ACETATE [Suspect]
     Active Substance: HYDROCORTISONE ACETATE
     Indication: Rheumatoid arthritis
     Dosage: UNK 25 DOSAGE FORM:2, TOPICAL 25 MG:3, UNK 50 MG:4, ORAL:5
     Route: 065
  37. RAMIPRIL [Suspect]
     Active Substance: RAMIPRIL
     Indication: Rheumatoid arthritis
     Dosage: NOT SPECIFIED
     Route: 065
  38. TRAMADOL HYDROCHLORIDE [Suspect]
     Active Substance: TRAMADOL HYDROCHLORIDE
     Indication: Product used for unknown indication
     Dosage: NOT SPECIFIED UNK 20 MG 1 IN 1 DAY:2
     Route: 065
  39. TRAMADOL HYDROCHLORIDE [Suspect]
     Active Substance: TRAMADOL HYDROCHLORIDE
     Route: 065
  40. TRIAMCINOLONE ACETONIDE [Suspect]
     Active Substance: TRIAMCINOLONE ACETONIDE
     Indication: Rheumatoid arthritis
     Route: 065
  41. CORTISONE [Suspect]
     Active Substance: CORTISONE
     Indication: Rheumatoid arthritis
     Dosage: CORTISONE ACETATE: 1. ORAL; 2. TBL; 3. TBL, ORAL;
     Route: 050
  42. CORTISONE [Suspect]
     Active Substance: CORTISONE
     Route: 065
  43. CORTISONE [Suspect]
     Active Substance: CORTISONE
     Dosage: CORTISONE ACETATE
     Route: 065
  44. CORTISONE [Suspect]
     Active Substance: CORTISONE
     Dosage: CORTISONE ACETATE
     Route: 048
  45. CORTISONE [Suspect]
     Active Substance: CORTISONE
     Dosage: CORTISONE ACETATE
     Route: 065
  46. CORTISONE [Suspect]
     Active Substance: CORTISONE
     Route: 065
  47. TOPICORT [Suspect]
     Active Substance: DESOXIMETASONE
     Indication: Rheumatoid arthritis
     Dosage: UNK DATES; 1. CREAM 0.25 %, CUTANEOUS; 2. CREAM, SC; 3. CREAM, 4. CUTANEOUS, INTRACARDIAC
     Route: 050
  48. TOPICORT [Suspect]
     Active Substance: DESOXIMETASONE
     Dosage: UNK DATES; 1. CREAM, TOPICAL; 2. ORAL, OINTMENT; 3. UNK; 4. SC; 5. ORAL; 6. CREAM; 7. OINTMENT,25 MG
     Route: 050
  49. TOPICORT [Suspect]
     Active Substance: DESOXIMETASONE
     Dosage: 8. OINTMENT, UNK; 9. CREAM, 25MG; 10. 5MG; 11. I.V; 12. CUTANEOUS; 13. 25MG, QW, ORAL; 14. ORAL, QW;
     Route: 050
  50. TOPICORT [Suspect]
     Active Substance: DESOXIMETASONE
     Dosage: 15. 25MG, QW; 16. CUTANEOUS, 25 MG; 17. ORAL, 25MG 18. 25 MG; TOPICAL, 19. UNK; ORAL 20. 1DF BID
     Route: 050
  51. TOPICORT [Suspect]
     Active Substance: DESOXIMETASONE
     Dosage: 21. 25MG, QD, 22. 25MG, BID FOR 4 MONTH, 23. 25MG, BID
     Route: 050
  52. TOPICORT [Suspect]
     Active Substance: DESOXIMETASONE
     Dosage: DESOXIMETASONE1. 1DF BID FOR 122 DAYS, 2. 2DF BID FOR 122 DAYS, 3. 3MG QD, 4. 25 MG BID FOR 122 DAYS
     Route: 050
  53. TOPICORT [Suspect]
     Active Substance: DESOXIMETASONE
     Dosage: DESOXIMETASONE 5. 3MG, 6. 25 MG BID, 7. 2DF BID, 8. 25 MG, 9. 25MG QD 10. VAGINAL, 11. 25MG ORAL
     Route: 050
  54. TOPICORT [Suspect]
     Active Substance: DESOXIMETASONE
     Dosage: DESOXIMETASONE 12. ORAL, 13. 10MG ORAL, 14. 5MG ORAL
     Route: 050
  55. TOPICORT [Suspect]
     Active Substance: DESOXIMETASONE
     Route: 065
  56. DESOXIMETASONE [Suspect]
     Active Substance: DESOXIMETASONE
     Indication: Rheumatoid arthritis
     Dosage: UNK DATES; 1. 1DF BID FOR 122 DAYS, 2. 2DF BID FOR 122 DAYS, 3. 3MG QD, 4. 25 MG BID FOR 122 DAYS
     Route: 050
  57. DESOXIMETASONE [Suspect]
     Active Substance: DESOXIMETASONE
     Dosage: UNK DATES; 5. , 6.  BID, 7. 2DF BID, 8. 25 MG, 9. QD 10. VAGINAL, 11.
     Route: 050
  58. DESOXIMETASONE [Suspect]
     Active Substance: DESOXIMETASONE
     Dosage: UNK DATES; 12. 13. 25 MG TOPICAL, 14. CUTANEOUS, 15. GEL PO
     Route: 050
  59. DESOXIMETASONE [Suspect]
     Active Substance: DESOXIMETASONE
     Dosage: 18. GEL, CUTANEOUS, 19, 20. 21. CREAM, 22. CREAM PO
     Route: 050
  60. DESOXIMETASONE [Suspect]
     Active Substance: DESOXIMETASONE
     Dosage: CREAM CUTANEOUS 24. CREAM PO 1 IN 1 WEEK, 25. TOPICAL 26. CUTANEOUS (3 CUTANEOUS ADMINISTRATIONS)
     Route: 050
  61. DESOXIMETASONE [Suspect]
     Active Substance: DESOXIMETASONE
     Dosage: 3 ADMINISTRATIONS
     Route: 061
  62. DESOXIMETASONE [Suspect]
     Active Substance: DESOXIMETASONE
     Dosage: 5 ADMINISTRATIONS
     Route: 065
  63. DESOXIMETASONE [Suspect]
     Active Substance: DESOXIMETASONE
     Route: 065
  64. DESOXIMETASONE [Suspect]
     Active Substance: DESOXIMETASONE
     Dosage: 2 ADMINISTRATIONS
     Route: 065
  65. DESOXIMETASONE [Suspect]
     Active Substance: DESOXIMETASONE
     Dosage: DOSAGE FORM: NOT SPECIFIED
     Route: 065
  66. DESOXIMETASONE [Suspect]
     Active Substance: DESOXIMETASONE
     Route: 048
  67. DESOXIMETASONE [Suspect]
     Active Substance: DESOXIMETASONE
     Route: 003
  68. DESOXIMETASONE [Suspect]
     Active Substance: DESOXIMETASONE
     Route: 003
  69. DESOXIMETASONE [Suspect]
     Active Substance: DESOXIMETASONE
     Route: 065
  70. AZATHIOPRINE SODIUM [Suspect]
     Active Substance: AZATHIOPRINE SODIUM
     Indication: Product used for unknown indication
     Route: 065
  71. METFORMIN HYDROCHLORIDE [Suspect]
     Active Substance: METFORMIN HYDROCHLORIDE
     Indication: Migraine
     Route: 065

REACTIONS (87)
  - Anti-cyclic citrullinated peptide antibody [Fatal]
  - Muscle injury [Fatal]
  - Musculoskeletal disorder [Fatal]
  - Drug ineffective [Fatal]
  - Breast cancer [Fatal]
  - Inflammatory bowel disease [Fatal]
  - Condition aggravated [Fatal]
  - Inflammation [Fatal]
  - Death neonatal [Fatal]
  - Deep vein thrombosis postoperative [Fatal]
  - Nervous system disorder [Fatal]
  - Disability [Fatal]
  - Exposure during pregnancy [Fatal]
  - Discomfort [Fatal]
  - Off label use [Fatal]
  - Oral disorder [Fatal]
  - Duodenal ulcer perforation [Fatal]
  - Musculoskeletal pain [Fatal]
  - Fluid retention [Fatal]
  - Folliculitis [Fatal]
  - General physical health deterioration [Fatal]
  - Metabolic disorder [Fatal]
  - Cardiovascular disorder [Fatal]
  - Impaired healing [Fatal]
  - Infection [Fatal]
  - Alopecia [Fatal]
  - Infusion related reaction [Fatal]
  - Injury [Fatal]
  - Sleep disorder due to general medical condition, insomnia type [Fatal]
  - Gastrointestinal disorder [Fatal]
  - Congenital haematological disorder [Fatal]
  - Movement disorder [Fatal]
  - Deformity [Fatal]
  - Live birth [Fatal]
  - Liver disorder [Fatal]
  - Loss of personal independence in daily activities [Fatal]
  - Fracture [Fatal]
  - Laboratory test abnormal [Fatal]
  - Adverse drug reaction [Fatal]
  - Night sweats [Fatal]
  - Nasopharyngitis [Fatal]
  - Lupus vulgaris [Fatal]
  - Medication error [Fatal]
  - Fungal infection [Fatal]
  - Osteoarthritis [Fatal]
  - Bone disorder [Fatal]
  - Pain [Fatal]
  - Pancreatitis [Fatal]
  - Neurological symptom [Fatal]
  - Angiopathy [Fatal]
  - Pneumonia [Fatal]
  - Psoriasis [Fatal]
  - Pulmonary fibrosis [Fatal]
  - Pyrexia [Fatal]
  - Dermatitis allergic [Fatal]
  - Respiratory disorder [Fatal]
  - Respiratory tract infection [Fatal]
  - Sciatica [Fatal]
  - Spinal fusion surgery [Fatal]
  - Subcutaneous drug absorption impaired [Fatal]
  - Autoimmune disorder [Fatal]
  - Taste disorder [Fatal]
  - Visual impairment [Fatal]
  - Weight fluctuation [Fatal]
  - Wound infection [Fatal]
  - Product quality issue [Fatal]
  - Diabetes mellitus [Fatal]
  - No adverse event [Fatal]
  - Arthropathy [Fatal]
  - Asthma [Fatal]
  - Blister [Fatal]
  - Chest pain [Fatal]
  - Hip arthroplasty [Fatal]
  - Hypoaesthesia [Fatal]
  - Ill-defined disorder [Fatal]
  - Joint range of motion decreased [Fatal]
  - Joint swelling [Fatal]
  - Knee arthroplasty [Fatal]
  - Psoriatic arthropathy [Fatal]
  - Road traffic accident [Fatal]
  - Swelling [Fatal]
  - Feeling hot [Fatal]
  - Wound [Fatal]
  - Synovitis [Fatal]
  - Accidental overdose [Fatal]
  - Aspiration [Fatal]
  - Hypocholesterolaemia [Fatal]
